FAERS Safety Report 7550635-2 (Version None)
Quarter: 2011Q2

REPORT INFORMATION
  Report Type: 
  Country: None (occurrence: None)
  Receive Date: 20110616
  Receipt Date: 20110607
  Transmission Date: 20111010
  Serious: Yes (Death, Disabling)
  Sender: FDA-Public Use
  Company Number: JP-CELGENEUS-087-21880-11030006

PATIENT
  Sex: Male

DRUGS (10)
  1. LANSOPRAZOLE [Concomitant]
     Indication: PROPHYLAXIS
     Dosage: 15 MILLIGRAM
     Route: 048
     Dates: start: 20100915, end: 20110226
  2. POWDERED RHUBARB [Concomitant]
     Indication: PROPHYLAXIS
     Dosage: 1 GRAM
     Route: 048
     Dates: start: 20101005, end: 20110226
  3. ALLOPURINOL [Concomitant]
     Indication: PROPHYLAXIS
     Dosage: 100 MILLIGRAM
     Route: 048
     Dates: start: 20100915, end: 20110226
  4. ASPIRIN [Concomitant]
     Indication: PROPHYLAXIS
     Dosage: 100 MILLIGRAM
     Route: 048
     Dates: start: 20110214, end: 20110216
  5. REVLIMID [Suspect]
     Indication: MULTIPLE MYELOMA
     Dosage: 15 MILLIGRAM
     Route: 048
     Dates: start: 20110214, end: 20110216
  6. DEXAMETHASONE [Suspect]
     Indication: MULTIPLE MYELOMA
     Dosage: 8 MILLIGRAM
     Route: 048
     Dates: start: 20110215, end: 20110216
  7. HALOPERIDOL [Concomitant]
     Indication: INSOMNIA
     Dosage: .75 MILLIGRAM
     Route: 048
     Dates: start: 20101005, end: 20110226
  8. LENDORMIN D [Concomitant]
     Indication: INSOMNIA
     Dosage: .25 MILLIGRAM
     Route: 048
     Dates: start: 20100915, end: 20110226
  9. LASIX [Concomitant]
     Indication: CARDIAC FAILURE
     Dosage: 20 MILLIGRAM
     Route: 048
     Dates: start: 20101001, end: 20110226
  10. ALDACTONE [Concomitant]
     Indication: CARDIAC FAILURE
     Dosage: 25 MILLIGRAM
     Route: 048
     Dates: start: 20101001, end: 20110226

REACTIONS (2)
  - DEATH [None]
  - RENAL FAILURE [None]
